FAERS Safety Report 7674512-1 (Version None)
Quarter: 2011Q3

REPORT INFORMATION
  Report Type: 
  Country: None (occurrence: None)
  Receive Date: 20110810
  Receipt Date: 20110729
  Transmission Date: 20111222
  Serious: Yes (Other)
  Sender: FDA-Public Use
  Company Number: PHHY2011US16184

PATIENT
  Sex: Female
  Weight: 77 kg

DRUGS (12)
  1. SOMA [Concomitant]
     Dosage: UNK UKN, UNK
  2. GLEEVEC [Suspect]
     Indication: GASTROINTESTINAL NEOPLASM
     Dosage: 400 MG DAILY
     Route: 048
     Dates: start: 20100901
  3. LYRICA [Concomitant]
     Dosage: UNK UKN, UNK
  4. LEXAPRO [Concomitant]
     Dosage: UNK UKN, UNK
  5. REMERON [Concomitant]
     Dosage: UNK UKN, UNK
  6. ESTRADERM [Concomitant]
     Dosage: UNK UKN, UNK
  7. AMBIEN [Concomitant]
     Dosage: UNK UKN, UNK
  8. SYNTHROID [Concomitant]
     Dosage: UNK UKN, UNK
  9. MILK OF MAGNESIA TAB [Concomitant]
     Dosage: UNK UKN, UNK
  10. PERCOCET [Concomitant]
     Dosage: UNK UKN, UNK
  11. ATIVAN [Concomitant]
     Dosage: UNK UKN, UNK
  12. NORVASC [Concomitant]
     Dosage: UNK UKN, UNK

REACTIONS (11)
  - NAUSEA [None]
  - MUSCLE SPASMS [None]
  - DECREASED APPETITE [None]
  - RASH [None]
  - JOINT SWELLING [None]
  - PAIN [None]
  - WEIGHT INCREASED [None]
  - MUSCULOSKELETAL CHEST PAIN [None]
  - EYE SWELLING [None]
  - SCIATICA [None]
  - HAEMORRHOIDS [None]
